FAERS Safety Report 5272690-5 (Version None)
Quarter: 2007Q1

REPORT INFORMATION
  Report Type: 
  Country: None (occurrence: None)
  Receive Date: 20070322
  Receipt Date: 20070319
  Transmission Date: 20070707
  Serious: Yes (Hospitalization)
  Sender: FDA-Public Use
  Company Number: 8-94290-001R

PATIENT
  Age: 35 Year
  Sex: Female

DRUGS (2)
  1. PREMARIN [Suspect]
     Indication: HORMONE REPLACEMENT THERAPY
     Dosage: 0.625 MG (DAYS 1-25)
     Route: 048
     Dates: start: 19880101
  2. PREMARIN [Suspect]
     Indication: HYSTERECTOMY

REACTIONS (1)
  - COLITIS ISCHAEMIC [None]
